FAERS Safety Report 5315282-1 (Version None)
Quarter: 2007Q2

REPORT INFORMATION
  Report Type: 
  Country: None (occurrence: None)
  Receive Date: 20070502
  Receipt Date: 20070423
  Transmission Date: 20071010
  Serious: Yes (Hospitalization, Disabling, Other)
  Sender: FDA-Public Use
  Company Number: CH-PFIZER INC-2007032566

PATIENT
  Sex: Female
  Weight: 58 kg

DRUGS (3)
  1. FRAGMIN [Suspect]
     Route: 058
     Dates: start: 20061218, end: 20070218
  2. CELEBREX [Concomitant]
     Dosage: DAILY DOSE:200MG
     Route: 048
     Dates: start: 20061124
  3. FLUIMUCIL [Concomitant]
     Route: 048

REACTIONS (2)
  - CEREBRAL HAEMORRHAGE [None]
  - HEMIPLEGIA [None]
